FAERS Safety Report 24383728 (Version 1)
Quarter: 2024Q4

REPORT INFORMATION
  Report Type: Spontaneous
  Country: CN (occurrence: CN)
  Receive Date: 20241001
  Receipt Date: 20241001
  Transmission Date: 20250115
  Serious: Yes (Hospitalization)
  Sender: BEIGENE
  Company Number: CN-BEIGENE-BGN-2024-015001

PATIENT

DRUGS (4)
  1. TISLELIZUMAB [Suspect]
     Active Substance: TISLELIZUMAB
     Indication: Nasopharyngeal cancer
     Dosage: 200 MILLIGRAM
     Route: 041
     Dates: start: 20240809
  2. DOCETAXEL [Suspect]
     Active Substance: DOCETAXEL
     Indication: Nasopharyngeal cancer
     Dosage: 120 MILLIGRAM
     Route: 041
     Dates: start: 20240809
  3. FLUOROURACIL [Suspect]
     Active Substance: FLUOROURACIL
     Indication: Nasopharyngeal cancer
     Dosage: 3.5 GRAM
     Dates: start: 20240809
  4. NEDAPLATIN [Suspect]
     Active Substance: NEDAPLATIN
     Indication: Nasopharyngeal cancer
     Dosage: 140 MILLIGRAM
     Route: 041
     Dates: start: 20240809

REACTIONS (1)
  - Myelosuppression [Recovering/Resolving]

NARRATIVE: CASE EVENT DATE: 20240818
